FAERS Safety Report 21064718 (Version 2)
Quarter: 2024Q4

REPORT INFORMATION
  Report Type: Spontaneous
  Country: SE (occurrence: SE)
  Receive Date: 20220711
  Receipt Date: 20241205
  Transmission Date: 20250114
  Serious: Yes (Hospitalization, Disabling)
  Sender: MYLAN
  Company Number: None

PATIENT
  Age: 38 Year
  Sex: Male
  Weight: 120 kg

DRUGS (5)
  1. SERTRALINE [Suspect]
     Active Substance: SERTRALINE HYDROCHLORIDE
     Indication: Depression
     Dosage: 200 MILLIGRAM, QD
     Route: 048
     Dates: start: 20200130, end: 2022
  2. SERTRALINE [Suspect]
     Active Substance: SERTRALINE HYDROCHLORIDE
     Indication: Stress
  3. PARAFLEX [Concomitant]
     Active Substance: CHLORZOXAZONE
     Dosage: UNK
     Route: 048
     Dates: start: 20200102
  4. ACETAMINOPHEN [Concomitant]
     Active Substance: ACETAMINOPHEN
     Dosage: UNK
     Route: 048
     Dates: start: 20200102
  5. IBUPROFEN [Concomitant]
     Active Substance: IBUPROFEN
     Dosage: 400 MILLIGRAM, Q8H
     Route: 065
     Dates: start: 20230101

REACTIONS (7)
  - Musculoskeletal stiffness [Not Recovered/Not Resolved]
  - Blood thyroid stimulating hormone increased [Not Recovered/Not Resolved]
  - Glucocorticoid deficiency [Recovered/Resolved with Sequelae]
  - Blood testosterone decreased [Not Recovered/Not Resolved]
  - Blood prolactin increased [Not Recovered/Not Resolved]
  - Gynaecomastia [Not Recovered/Not Resolved]
  - Galactorrhoea [Not Recovered/Not Resolved]

NARRATIVE: CASE EVENT DATE: 20210302
